FAERS Safety Report 18880005 (Version 2)
Quarter: 2021Q1

REPORT INFORMATION
  Report Type: Spontaneous
  Country: US (occurrence: US)
  Receive Date: 20210211
  Receipt Date: 20210211
  Transmission Date: 20210420
  Serious: Yes (Other)
  Sender: FDA-Public Use
  Company Number: US-CELGENEUS-USA-20210201589

PATIENT
  Age: 36 Year
  Sex: Female
  Weight: 55.3 kg

DRUGS (6)
  1. AZACITIDINE. [Suspect]
     Active Substance: AZACITIDINE
     Route: 041
     Dates: start: 20200325, end: 20200926
  2. FLUOROMETHOLONE. [Concomitant]
     Active Substance: FLUOROMETHOLONE
     Indication: PRODUCT USED FOR UNKNOWN INDICATION
     Dosage: .4 PERCENT
     Route: 047
  3. AZACITIDINE. [Suspect]
     Active Substance: AZACITIDINE
     Indication: MYELODYSPLASTIC SYNDROME
     Route: 041
     Dates: start: 20160412, end: 20161024
  4. AZACITIDINE. [Suspect]
     Active Substance: AZACITIDINE
     Route: 041
     Dates: start: 201907, end: 201910
  5. VORICONAZOLE. [Concomitant]
     Active Substance: VORICONAZOLE
     Indication: PRODUCT USED FOR UNKNOWN INDICATION
     Dosage: 400 MILLIGRAM
     Route: 065
     Dates: start: 20201110
  6. DEXTROMETHORPHAN [Concomitant]
     Active Substance: DEXTROMETHORPHAN
     Indication: PRODUCT USED FOR UNKNOWN INDICATION
     Route: 048

REACTIONS (3)
  - Myelodysplastic syndrome [Unknown]
  - Chronic graft versus host disease [Unknown]
  - Acute myeloid leukaemia [Unknown]
